FAERS Safety Report 5772002-4 (Version None)
Quarter: 2008Q2

REPORT INFORMATION
  Report Type: 
  Country: None (occurrence: None)
  Receive Date: 20080611
  Receipt Date: 20080529
  Transmission Date: 20081010
  Serious: Yes (Other)
  Sender: FDA-Public Use
  Company Number: 2008-0809

PATIENT
  Age: 34 Year
  Sex: Male

DRUGS (1)
  1. SOMATULINE SR (LANREOTIDE ACETATE) (LANREOTIDE ACETATE) [Suspect]
     Indication: ACROMEGALY
     Dosage: (40 MG, 1 IN 14 D) INTRAMUSCULAR
     Route: 030
     Dates: start: 20080228, end: 20080501

REACTIONS (3)
  - CHOLECYSTITIS [None]
  - CHOLELITHIASIS [None]
  - GALLBLADDER POLYP [None]
